FAERS Safety Report 5521482-8 (Version None)
Quarter: 2007Q4

REPORT INFORMATION
  Report Type: 
  Country: None (occurrence: None)
  Receive Date: 20071119
  Receipt Date: 20071107
  Transmission Date: 20080405
  Serious: Yes (Other)
  Sender: FDA-Public Use
  Company Number: US-PFIZER INC-2007088062

PATIENT
  Sex: Female
  Weight: 90.7 kg

DRUGS (8)
  1. DILANTIN [Suspect]
     Indication: CONVULSION
  2. GABAPENTIN [Concomitant]
  3. BUSPAR [Concomitant]
  4. PHENOBARBITAL TAB [Concomitant]
  5. ALL OTHER THERAPEUTIC PRODUCTS [Concomitant]
     Indication: HYPERTENSION
  6. LORTAB [Concomitant]
  7. XANAX [Concomitant]
  8. PAXIL [Concomitant]

REACTIONS (5)
  - ANTICONVULSANT DRUG LEVEL DECREASED [None]
  - CONVULSION [None]
  - DRUG INEFFECTIVE [None]
  - MALAISE [None]
  - UNEVALUABLE EVENT [None]
